FAERS Safety Report 4668740-7 (Version None)
Quarter: 2005Q2

REPORT INFORMATION
  Report Type: 
  Country: None (occurrence: None)
  Receive Date: 20050523
  Receipt Date: 20030704
  Transmission Date: 20051028
  Serious: Yes (Hospitalization)
  Sender: FDA-Public Use
  Company Number: PHHO2003CA08711

PATIENT
  Age: 82 Year
  Sex: Female
  Weight: 55 kg

DRUGS (1)
  1. ZOLEDRONIC ACID VS PLACEBO [Suspect]
     Indication: OSTEOPOROTIC FRACTURE
     Dosage: 5MG
     Route: 042
     Dates: start: 20021223

REACTIONS (5)
  - ARTHRALGIA [None]
  - ASEPTIC NECROSIS BONE [None]
  - DISEASE PROGRESSION [None]
  - HIP ARTHROPLASTY [None]
  - OPEN REDUCTION OF FRACTURE [None]
